FAERS Safety Report 6538314-1 (Version None)
Quarter: 2010Q1

REPORT INFORMATION
  Report Type: 
  Country: None (occurrence: None)
  Receive Date: 20100112
  Receipt Date: 20100112
  Transmission Date: 20100710
  Serious: Yes (Hospitalization)
  Sender: FDA-Public Use
  Company Number: None

PATIENT
  Sex: Male
  Weight: 84.369 kg

DRUGS (2)
  1. ERLOTINIB [Suspect]
     Indication: NON-SMALL CELL LUNG CANCER
     Dosage: 100MG QD PO
     Route: 048
     Dates: start: 20091228, end: 20100111
  2. GEMCITABINE [Suspect]
     Indication: NON-SMALL CELL LUNG CANCER
     Dosage: 2000MG WEEKLY IV DRIP
     Route: 041
     Dates: start: 20091228, end: 20091228

REACTIONS (1)
  - INTESTINAL OBSTRUCTION [None]
